FAERS Safety Report 5080697-6 (Version None)
Quarter: 2006Q3

REPORT INFORMATION
  Report Type: 
  Country: None (occurrence: None)
  Receive Date: 20060720
  Receipt Date: 20050623
  Transmission Date: 20061208
  Serious: Yes (Hospitalization, Other)
  Sender: FDA-Public Use
  Company Number: 2005119670

PATIENT
  Sex: Female

DRUGS (36)
  1. CELEBREX [Suspect]
     Indication: OSTEOARTHRITIS
  2. CELEBREX [Suspect]
     Indication: PLANTAR FASCIITIS
  3. LITHIUM (LITHIUM) [Suspect]
     Indication: BIPOLAR DISORDER
     Dosage: 1200 MG (1 IN 1 D)
     Dates: start: 20050501
  4. NAPROSYN [Suspect]
     Indication: OSTEOARTHRITIS
  5. NAPROSYN [Suspect]
     Indication: PLANTAR FASCIITIS
  6. VIOXX [Suspect]
     Indication: OSTEOARTHRITIS
  7. VIOXX [Suspect]
     Indication: PLANTAR FASCIITIS
  8. PAXIL [Suspect]
     Indication: DEPRESSION
     Dates: start: 20040101, end: 20050101
  9. WELLBUTRIN [Suspect]
     Indication: BIPOLAR DISORDER
     Dates: start: 20050201
  10. LAMICTAL [Concomitant]
  11. ZYPREXA [Concomitant]
  12. CARBAMAZEPINE [Concomitant]
  13. RISPERDAL [Concomitant]
  14. SEROQUEL [Concomitant]
  15. FLOVENT [Concomitant]
  16. NIFEREX FORTE (CYANOCOBALAMIN, FOLIC ACID, POLYSACCHARIDE-IRON COMPLEX [Concomitant]
  17. OMEPRAZOLE [Concomitant]
  18. PREMARIN [Concomitant]
  19. PROVIGIL [Concomitant]
  20. SAW PALMETTO (SAW PALMETTO) [Concomitant]
  21. ACYCLOVIR [Concomitant]
  22. ALLFEN (GUAIFENESIN) [Concomitant]
  23. BENTYL [Concomitant]
  24. HYDROCHLOROTHIAZIDE [Concomitant]
  25. IMITREX [Concomitant]
  26. POTASSIUM CHLORIDE [Concomitant]
  27. PHENERGAN [Concomitant]
  28. ACETAMINOPHEN [Concomitant]
  29. PREMARIN [Concomitant]
  30. PROVENTIL /OLD FORM/ (SALBUTAMOL) [Concomitant]
  31. PSEUDOEPHEDRINE (PSEUDOEPHEDRINE) [Concomitant]
  32. IBUPROFEN [Concomitant]
  33. ASPIRIN [Concomitant]
  34. BACLOFEN [Concomitant]
  35. VITAMINS (VITAMINS) [Concomitant]
  36. COLACE (DOCUSATE SODIUM) [Concomitant]

REACTIONS (14)
  - ACCIDENTAL EXPOSURE [None]
  - ARTHRALGIA [None]
  - BIPOLAR DISORDER [None]
  - DEPRESSION [None]
  - DRUG INEFFECTIVE [None]
  - DRUG INTERACTION [None]
  - GASTRIC ULCER [None]
  - HYPERTENSION [None]
  - MUSCULOSKELETAL PAIN [None]
  - ROAD TRAFFIC ACCIDENT [None]
  - THERAPEUTIC AGENT TOXICITY [None]
  - TREMOR [None]
  - VISION BLURRED [None]
  - WEIGHT DECREASED [None]
